FAERS Safety Report 19329538 (Version 1)
Quarter: 2021Q2

REPORT INFORMATION
  Report Type: Spontaneous
  Country: GR (occurrence: GR)
  Receive Date: 20210528
  Receipt Date: 20210528
  Transmission Date: 20210717
  Serious: Yes (Other)
  Sender: FDA-Public Use
  Company Number: GR-BAUSCH-BL-2021-017754

PATIENT
  Sex: Male
  Weight: 1.12 kg

DRUGS (12)
  1. GENTAMICIN. [Suspect]
     Active Substance: GENTAMICIN
     Indication: PRODUCT USED FOR UNKNOWN INDICATION
     Dosage: VIA AN UMBILICAL LINE
     Route: 065
  2. GENTAMICIN. [Suspect]
     Active Substance: GENTAMICIN
     Dosage: VIA PERIPHERAL INTRAVENOUS (PIV) LINE
     Route: 042
  3. AMPICILLIN [Suspect]
     Active Substance: AMPICILLIN
     Dosage: VIA PERIPHERAL INTRAVENOUS (PIV) LINE
     Route: 042
  4. CAFFEINE. [Suspect]
     Active Substance: CAFFEINE
     Dosage: VIA PERIPHERAL INTRAVENOUS (PIV) LINE
     Route: 042
  5. CEFTRIAXONE. [Suspect]
     Active Substance: CEFTRIAXONE
     Dosage: VIA PERIPHERAL INTRAVENOUS (PIV) LINE
     Route: 042
  6. CAFFEINE. [Suspect]
     Active Substance: CAFFEINE
     Indication: PRODUCT USED FOR UNKNOWN INDICATION
     Dosage: VIA AN UMBILICAL LINE
     Route: 065
  7. CEFTRIAXONE. [Suspect]
     Active Substance: CEFTRIAXONE
     Indication: PRODUCT USED FOR UNKNOWN INDICATION
     Dosage: VIA AN UMBILICAL LINE
     Route: 065
  8. DOPAMINE [Suspect]
     Active Substance: DOPAMINE HYDROCHLORIDE
     Indication: PRODUCT USED FOR UNKNOWN INDICATION
     Dosage: VIA AN UMBILICAL LINE
     Route: 065
  9. FENTANYL. [Suspect]
     Active Substance: FENTANYL
     Indication: PRODUCT USED FOR UNKNOWN INDICATION
     Dosage: VIA AN UMBILICAL LINE
     Route: 065
  10. AMPICILLIN [Suspect]
     Active Substance: AMPICILLIN
     Indication: PRODUCT USED FOR UNKNOWN INDICATION
     Dosage: VIA AN UMBILICAL LINE
     Route: 065
  11. DOPAMINE [Suspect]
     Active Substance: DOPAMINE HYDROCHLORIDE
     Dosage: VIA PERIPHERAL INTRAVENOUS (PIV) LINE
     Route: 042
  12. FENTANYL. [Suspect]
     Active Substance: FENTANYL
     Dosage: VIA PERIPHERAL INTRAVENOUS (PIV) LINE
     Route: 042

REACTIONS (1)
  - Extravasation [Recovered/Resolved]
